FAERS Safety Report 12636607 (Version 1)
Quarter: 2016Q3

REPORT INFORMATION
  Report Type: Spontaneous
  Country: IT (occurrence: IT)
  Receive Date: 20160809
  Receipt Date: 20160809
  Transmission Date: 20161109
  Serious: Yes (Life-Threatening, Other)
  Sender: FDA-Public Use
  Company Number: IT-BRISTOL-MYERS SQUIBB COMPANY-BMS-2016-062574

PATIENT
  Age: 82 Year
  Sex: Male
  Weight: 85 kg

DRUGS (5)
  1. COUMADIN [Suspect]
     Active Substance: WARFARIN SODIUM
     Indication: ATRIAL FIBRILLATION
     Dosage: 5 MG, QD
     Route: 048
     Dates: start: 20160606, end: 20160612
  2. ENOXAPARIN SODIUM. [Interacting]
     Active Substance: ENOXAPARIN SODIUM
     Indication: ANTICOAGULANT THERAPY
     Dosage: 16000 IU, QD
     Route: 058
     Dates: start: 20160606, end: 20160612
  3. IBUPROFEN SODIUM. [Interacting]
     Active Substance: IBUPROFEN SODIUM
     Indication: PERICARDITIS
     Dosage: 1200 MG, QD
     Route: 048
     Dates: start: 20160531, end: 20160613
  4. PROPAFENONE. [Concomitant]
     Active Substance: PROPAFENONE
     Indication: ARRHYTHMIA
     Dosage: 450 MG, UNK
     Route: 048
     Dates: start: 20160607, end: 20160613
  5. PANTOPRAZOLE SODIUM. [Concomitant]
     Active Substance: PANTOPRAZOLE SODIUM
     Indication: PROPHYLAXIS
     Dosage: 20 MG, UNK
     Route: 048
     Dates: start: 20160531, end: 20160721

REACTIONS (4)
  - Drug interaction [Unknown]
  - Subdural haematoma [Recovered/Resolved with Sequelae]
  - Transfusion [Unknown]
  - Subdural haematoma evacuation [Unknown]

NARRATIVE: CASE EVENT DATE: 20160613
